FAERS Safety Report 6322107-4 (Version None)
Quarter: 2009Q3

REPORT INFORMATION
  Report Type: 
  Country: None (occurrence: None)
  Receive Date: 20090824
  Receipt Date: 20090821
  Transmission Date: 20100115
  Serious: Yes (Life-Threatening, Hospitalization, Other)
  Sender: FDA-Public Use
  Company Number: US-RB-019700-09

PATIENT
  Age: 25 Year
  Sex: Female

DRUGS (6)
  1. SUBUTEX [Suspect]
     Route: 060
     Dates: start: 20081101, end: 20090301
  2. SUBUTEX [Suspect]
     Route: 060
     Dates: start: 20090701
  3. SUBOXONE [Suspect]
     Route: 060
     Dates: start: 20050101, end: 20081101
  4. SUBOXONE [Suspect]
     Dosage: DOSING INFORMATION UNKNOWN.
     Route: 060
     Dates: start: 20090301, end: 20090701
  5. XANAX [Suspect]
     Indication: ANXIETY
     Dosage: CONSUMER TAKES VARIOUS DECREASING DOSES.
     Dates: start: 20090101
  6. XANAX [Suspect]
     Route: 065
     Dates: end: 20090101

REACTIONS (4)
  - CARDIAC ARREST [None]
  - CHILLS [None]
  - LOSS OF CONSCIOUSNESS [None]
  - VOMITING [None]
